FAERS Safety Report 24805173 (Version 1)
Quarter: 2025Q1

REPORT INFORMATION
  Report Type: Spontaneous
  Country: US (occurrence: US)
  Receive Date: 20250103
  Receipt Date: 20250103
  Transmission Date: 20250408
  Serious: Yes (Other)
  Sender: RADIUS PHARM
  Company Number: US-RADIUS HEALTH INC.-2024US008211

PATIENT
  Sex: Female

DRUGS (2)
  1. TYMLOS [Suspect]
     Active Substance: ABALOPARATIDE
     Indication: Senile osteoporosis
     Route: 058
     Dates: start: 20241009
  2. TYMLOS [Suspect]
     Active Substance: ABALOPARATIDE
     Indication: Osteoporotic fracture

REACTIONS (13)
  - Pneumonia [Unknown]
  - Blood pressure systolic increased [Unknown]
  - Anxiety [Unknown]
  - Joint injury [Unknown]
  - Intentional dose omission [Unknown]
  - Heart rate increased [Not Recovered/Not Resolved]
  - Nausea [Unknown]
  - Insomnia [Unknown]
  - Palpitations [Not Recovered/Not Resolved]
  - Dizziness [Unknown]
  - Headache [Not Recovered/Not Resolved]
  - Back pain [Unknown]
  - Product dose omission issue [Unknown]

NARRATIVE: CASE EVENT DATE: 20240101
